FAERS Safety Report 20809449 (Version 3)
Quarter: 2022Q4

REPORT INFORMATION
  Report Type: Spontaneous
  Country: US (occurrence: US)
  Receive Date: 20220510
  Receipt Date: 20221006
  Transmission Date: 20230112
  Serious: No
  Sender: FDA-Public Use
  Company Number: US-PFIZER INC-202200055747

PATIENT
  Age: 68 Year
  Sex: Female

DRUGS (2)
  1. ESTRING [Suspect]
     Active Substance: ESTRADIOL
     Dosage: 7.5 UG, DAILY (7.5 MCG/24 HOUR)
  2. PREMARIN [Suspect]
     Active Substance: ESTROGENS, CONJUGATED
     Dosage: UNK

REACTIONS (4)
  - Acne [Unknown]
  - Emotional distress [Unknown]
  - Urinary tract disorder [Unknown]
  - Vulvovaginal dryness [Unknown]
